FAERS Safety Report 7557233-5 (Version None)
Quarter: 2011Q2

REPORT INFORMATION
  Report Type: 
  Country: None (occurrence: None)
  Receive Date: 20110620
  Receipt Date: 20110325
  Transmission Date: 20111010
  Serious: No
  Sender: FDA-Public Use
  Company Number: US-MYLANLABS-2011S1006519

PATIENT
  Age: 88 Year
  Sex: Female
  Weight: 58.51 kg

DRUGS (3)
  1. CARDIAC THERAPY [Concomitant]
     Dosage: HEART MEDICINE FOR TWO STENTS (UNKNOWN NAME, STRENGTH)
  2. PERFOROMIST [Suspect]
     Indication: CHRONIC OBSTRUCTIVE PULMONARY DISEASE
     Route: 055
     Dates: start: 20110314, end: 20110314
  3. OTHER RESPIRATORY SYSTEM PRODUCTS [Concomitant]
     Dosage: LUNG MEDICINE (UNKNOWN NAME, STRENGTH)

REACTIONS (1)
  - DYSPNOEA [None]
